FAERS Safety Report 5382906-2 (Version None)
Quarter: 2007Q3

REPORT INFORMATION
  Report Type: 
  Country: None (occurrence: None)
  Receive Date: 20070702
  Receipt Date: 20070423
  Transmission Date: 20080115
  Serious: No
  Sender: FDA-Public Use
  Company Number: 2007PV032844

PATIENT
  Age: 57 Year
  Sex: Male
  Weight: 78.0187 kg

DRUGS (6)
  1. SYMLIN [Suspect]
     Indication: TYPE 1 DIABETES MELLITUS
     Dosage: 15 MCG;TID;SC;PRN;SC
     Route: 058
     Dates: start: 20070325, end: 20070423
  2. SYMLIN [Suspect]
     Indication: TYPE 1 DIABETES MELLITUS
     Dosage: 15 MCG;TID;SC;PRN;SC
     Route: 058
     Dates: start: 20070423
  3. LEVEMIR [Concomitant]
  4. NOVOLOG [Concomitant]
  5. LIPITOR [Concomitant]
  6. ZETIA [Concomitant]

REACTIONS (4)
  - INCORRECT DOSE ADMINISTERED [None]
  - NAUSEA [None]
  - RETCHING [None]
  - VOMITING [None]
